FAERS Safety Report 8080004-0 (Version None)
Quarter: 2012Q1

REPORT INFORMATION
  Report Type: 
  Country: None (occurrence: None)
  Receive Date: 20120128
  Receipt Date: 20110811
  Transmission Date: 20120608
  Serious: No
  Sender: FDA-Public Use
  Company Number: US-ABBOTT-11P-163-0845770-00

PATIENT
  Age: 41 Year
  Sex: Male

DRUGS (3)
  1. METHOTREXATE [Concomitant]
     Indication: PRODUCT USED FOR UNKNOWN INDICATION
  2. DICLOFENAC SODIUM [Concomitant]
     Indication: PRODUCT USED FOR UNKNOWN INDICATION
  3. HUMIRA [Suspect]
     Indication: PSORIATIC ARTHROPATHY
     Dates: start: 20110301, end: 20110722

REACTIONS (7)
  - LYMPHADENOPATHY [None]
  - THROAT IRRITATION [None]
  - RASH PUSTULAR [None]
  - BLISTER [None]
  - SKIN EXFOLIATION [None]
  - DRY MOUTH [None]
  - MYALGIA [None]
